FAERS Safety Report 6153396-7 (Version None)
Quarter: 2009Q2

REPORT INFORMATION
  Report Type: 
  Country: None (occurrence: None)
  Receive Date: 20090409
  Receipt Date: 20090409
  Transmission Date: 20091009
  Serious: Yes (Death)
  Sender: FDA-Public Use
  Company Number: None

PATIENT
  Age: 60 Year
  Sex: Male
  Weight: 87.9978 kg

DRUGS (1)
  1. REVLIMID 5 MG GELGENE [Suspect]
     Dosage: 5MG QD PO
     Route: 048

REACTIONS (1)
  - DEATH [None]
